FAERS Safety Report 10685780 (Version 2)
Quarter: 2015Q1

REPORT INFORMATION
  Report Type: Spontaneous
  Country: US (occurrence: US)
  Receive Date: 20141231
  Receipt Date: 20150204
  Transmission Date: 20150720
  Serious: Yes (Hospitalization)
  Sender: FDA-Public Use
  Company Number: US-UNITED THERAPEUTICS-UNT-2014-012812

PATIENT
  Age: 34 Year
  Sex: Female
  Weight: 56.68 kg

DRUGS (2)
  1. ADEMPAS [Concomitant]
     Active Substance: RIOCIGUAT
     Indication: PRODUCT USED FOR UNKNOWN INDICATION
  2. REMODULIN [Suspect]
     Active Substance: TREPROSTINIL
     Indication: PULMONARY HYPERTENSION
     Dosage: 0.080 ?G/KG, CONTINUING
     Route: 058
     Dates: start: 20121001

REACTIONS (4)
  - Atrial fibrillation [Recovered/Resolved]
  - Right ventricular failure [Unknown]
  - Dyspnoea [Recovered/Resolved]
  - Pneumonia [Recovered/Resolved]

NARRATIVE: CASE EVENT DATE: 20141215
